FAERS Safety Report 22619623 (Version 1)
Quarter: 2023Q2

REPORT INFORMATION
  Report Type: Spontaneous
  Country: US (occurrence: None)
  Receive Date: 20230616
  Receipt Date: 20230616
  Transmission Date: 20230721
  Serious: Yes (Disabling)
  Sender: FDA-Public Use
  Company Number: None

PATIENT
  Age: 66 Year
  Sex: Female
  Weight: 64.35 kg

DRUGS (9)
  1. CAPLYTA [Suspect]
     Active Substance: LUMATEPERONE
     Indication: Bipolar I disorder
     Dosage: OTHER QUANTITY : 1 CAPSULE(S);?
     Route: 048
  2. LATUDA [Suspect]
     Active Substance: LURASIDONE HYDROCHLORIDE
  3. OXYCODONE [Concomitant]
     Active Substance: OXYCODONE
  4. DIAZEPAM [Concomitant]
     Active Substance: DIAZEPAM
  5. TEMAZEPAM [Concomitant]
     Active Substance: TEMAZEPAM
  6. LITHIUM CARBONATE [Concomitant]
     Active Substance: LITHIUM CARBONATE
  7. AMOXICILLIN AND CLAVULANATE POTASSIUM [Concomitant]
     Active Substance: AMOXICILLIN\CLAVULANATE POTASSIUM
  8. LEVOTHYROXINE [Concomitant]
     Active Substance: LEVOTHYROXINE
  9. MOTRIN [Concomitant]
     Active Substance: IBUPROFEN

REACTIONS (13)
  - Restless legs syndrome [None]
  - Neuralgia [None]
  - Dizziness [None]
  - Feeling drunk [None]
  - Gait disturbance [None]
  - Nausea [None]
  - Temperature regulation disorder [None]
  - Feeling hot [None]
  - Feeling abnormal [None]
  - Fatigue [None]
  - Somnolence [None]
  - Bedridden [None]
  - Impaired quality of life [None]

NARRATIVE: CASE EVENT DATE: 20230614
